FAERS Safety Report 24888843 (Version 1)
Quarter: 2025Q1

REPORT INFORMATION
  Report Type: Spontaneous
  Country: US (occurrence: None)
  Receive Date: 20250123
  Receipt Date: 20250123
  Transmission Date: 20250409
  Serious: No
  Sender: FDA-CTU
  Company Number: None

PATIENT
  Age: 57 Year
  Sex: Male

DRUGS (2)
  1. CARVEDILOL [Suspect]
     Active Substance: CARVEDILOL
     Indication: Extrasystoles
     Dosage: FREQUENCY : TWICE A DAY;?
     Route: 048
     Dates: start: 20240808, end: 20240817
  2. LOSARTAN [Suspect]
     Active Substance: LOSARTAN
     Dosage: FREQUENCY : DAILY;?
     Route: 048
     Dates: start: 20240808, end: 20240817

REACTIONS (6)
  - Dizziness postural [None]
  - Dizziness [None]
  - Syncope [None]
  - Fall [None]
  - Dizziness [None]
  - Tunnel vision [None]

NARRATIVE: CASE EVENT DATE: 20240816
